FAERS Safety Report 14287828 (Version 2)
Quarter: 2017Q4

REPORT INFORMATION
  Report Type: Spontaneous
  Country: JP (occurrence: JP)
  Receive Date: 20171215
  Receipt Date: 20171226
  Transmission Date: 20180321
  Serious: Yes (Other)
  Sender: FDA-Public Use
  Company Number: JP-AMGEN-JPNSP2017118062

PATIENT
  Age: 70 Year
  Sex: Female
  Weight: 70 kg

DRUGS (15)
  1. G-LASTA [Suspect]
     Active Substance: PEGFILGRASTIM
     Indication: PRODUCT USED FOR UNKNOWN INDICATION
     Dosage: 3.6 MG, UNK
     Route: 058
     Dates: start: 20170301, end: 20170301
  2. BONOTEO [Concomitant]
     Active Substance: MINODRONIC ACID
     Dosage: 50 MG, 1X/MONTH
     Route: 048
     Dates: start: 20170213
  3. ADRIACIN [Suspect]
     Active Substance: DOXORUBICIN HYDROCHLORIDE
     Indication: PRODUCT USED FOR UNKNOWN INDICATION
     Dosage: 100 MG, UNK
     Route: 041
     Dates: start: 20170207, end: 20170411
  4. ENDOXAN                            /00021101/ [Suspect]
     Active Substance: CYCLOPHOSPHAMIDE
     Indication: PRODUCT USED FOR UNKNOWN INDICATION
     Dosage: 1000 MG, UNK
     Route: 041
     Dates: start: 20170207, end: 20170411
  5. GRAN [Concomitant]
     Active Substance: FILGRASTIM
     Indication: PRODUCT USED FOR UNKNOWN INDICATION
     Dosage: 75 MUG, QD
     Route: 058
     Dates: start: 20170320
  6. AMLODIN [Concomitant]
     Active Substance: AMLODIPINE BESYLATE
     Dosage: 5 MG, QD
     Route: 048
     Dates: start: 20170113
  7. RIKKUNSHITO                        /08041001/ [Concomitant]
     Active Substance: HERBALS
     Dosage: 2.5 G, TID
     Route: 048
     Dates: start: 20170213
  8. G-LASTA [Suspect]
     Active Substance: PEGFILGRASTIM
     Dosage: 3.6 MG, UNK
     Route: 058
     Dates: start: 20170621, end: 20170621
  9. HERCEPTIN [Concomitant]
     Active Substance: TRASTUZUMAB
     Dosage: 420 MG, 1X/3WEEKS
     Route: 041
     Dates: start: 20170523
  10. G-LASTA [Suspect]
     Active Substance: PEGFILGRASTIM
     Dosage: 3.6 MG, UNK
     Route: 058
     Dates: start: 20170322, end: 20170322
  11. G-LASTA [Suspect]
     Active Substance: PEGFILGRASTIM
     Dosage: 3.6 MG, UNK
     Route: 058
     Dates: start: 20170412, end: 20170412
  12. PACLITAXEL. [Suspect]
     Active Substance: PACLITAXEL
     Indication: PRODUCT USED FOR UNKNOWN INDICATION
     Dosage: 130 MG, UNK
     Route: 041
     Dates: start: 20170502, end: 20170808
  13. G-LASTA [Suspect]
     Active Substance: PEGFILGRASTIM
     Dosage: 3.6 MG, UNK
     Route: 058
     Dates: start: 20170531, end: 20170531
  14. HERCEPTIN [Concomitant]
     Active Substance: TRASTUZUMAB
     Dosage: 570 MG, QD
     Route: 041
     Dates: start: 20170502
  15. XARELTO [Concomitant]
     Active Substance: RIVAROXABAN
     Dosage: 15 MG, QD
     Route: 048
     Dates: start: 20170213

REACTIONS (10)
  - Malaise [Recovered/Resolved]
  - Malaise [Recovered/Resolved]
  - Colony stimulating factor therapy [Unknown]
  - Decreased appetite [Recovered/Resolved]
  - Drug eruption [Recovered/Resolved]
  - Blister [Recovered/Resolved]
  - Malaise [Recovered/Resolved]
  - Malaise [Recovered/Resolved]
  - Off label use [Unknown]
  - Malaise [Recovered/Resolved]

NARRATIVE: CASE EVENT DATE: 20170302
